FAERS Safety Report 24955736 (Version 1)
Quarter: 2025Q1

REPORT INFORMATION
  Report Type: Spontaneous
  Country: US (occurrence: US)
  Receive Date: 20250211
  Receipt Date: 20250211
  Transmission Date: 20250409
  Serious: Yes (Other)
  Sender: SANOFI AVENTIS
  Company Number: US-SA-2025SA040628

PATIENT
  Sex: Female
  Weight: 84.18 kg

DRUGS (1)
  1. DUPIXENT [Suspect]
     Active Substance: DUPILUMAB
     Indication: Dermatitis atopic
     Dosage: 300 MG, QOW
     Route: 058

REACTIONS (9)
  - Autism spectrum disorder [Unknown]
  - Blister [Recovering/Resolving]
  - Acne [Recovering/Resolving]
  - Skin ulcer [Recovering/Resolving]
  - Pustule [Recovering/Resolving]
  - Melanocytic naevus [Unknown]
  - Stress [Unknown]
  - Erythema [Recovering/Resolving]
  - Therapeutic response shortened [Unknown]
